FAERS Safety Report 4333649-5 (Version None)
Quarter: 2004Q2

REPORT INFORMATION
  Report Type: 
  Country: None (occurrence: None)
  Receive Date: 20040402
  Receipt Date: 20040324
  Transmission Date: 20050107
  Serious: Yes (Hospitalization, Other)
  Sender: FDA-Public Use
  Company Number: 200416490BWH

PATIENT
  Age: 61 Year
  Sex: Female
  Weight: 50.8029 kg

DRUGS (7)
  1. AVELOX [Suspect]
     Indication: POSTNASAL DRIP
     Dosage: 400 MG, ONCE, ORAL
     Route: 048
     Dates: start: 20040316
  2. AVELOX [Suspect]
     Indication: WHITE BLOOD CELL COUNT INCREASED
     Dosage: 400 MG, ONCE, ORAL
     Route: 048
     Dates: start: 20040316
  3. LIPITOR [Concomitant]
  4. SYNTHROID [Concomitant]
  5. DIGOXIN [Concomitant]
  6. K-DUR 10 [Concomitant]
  7. GEMFIBROZIL [Concomitant]

REACTIONS (6)
  - APHONIA [None]
  - CAROTID ARTERY OCCLUSION [None]
  - HYPERHIDROSIS [None]
  - HYPOAESTHESIA [None]
  - PALPITATIONS [None]
  - VOMITING [None]
